FAERS Safety Report 7224274-7 (Version None)
Quarter: 2011Q1

REPORT INFORMATION
  Report Type: 
  Country: None (occurrence: None)
  Receive Date: 20110106
  Receipt Date: 20110106
  Transmission Date: 20110831
  Serious: Yes (Hospitalization)
  Sender: FDA-Public Use
  Company Number: None

PATIENT
  Age: 90 Year
  Sex: Male
  Weight: 72.7 kg

DRUGS (11)
  1. SYNTHROID [Suspect]
  2. POTASSIUM CHLORIDE [Concomitant]
  3. WARFARIN SODIUM [Suspect]
     Indication: ATRIAL FIBRILLATION
     Dosage: 5 MG S M W F PO
     Route: 048
  4. HYDROCHLOROTHIAZIDE [Concomitant]
  5. WARFARIN SODIUM [Suspect]
     Indication: ATRIAL FIBRILLATION
     Dosage: 7.5 MG T TH S PO
     Route: 048
  6. CIPRO [Suspect]
     Indication: INFECTION
     Dosage: 7.5 MG T TH S PO
     Route: 048
  7. AMLODIPINE [Concomitant]
  8. ALLOPURINOL [Concomitant]
  9. DIGOXIN [Concomitant]
  10. CARBIDOPA AND LEVODOPA [Concomitant]
  11. CENTRIUM SILVER [Concomitant]

REACTIONS (7)
  - COAGULOPATHY [None]
  - INTERNATIONAL NORMALISED RATIO INCREASED [None]
  - FALL [None]
  - HAEMORRHAGE [None]
  - HAEMORRHAGIC ANAEMIA [None]
  - DRUG INTERACTION [None]
  - LIMB INJURY [None]
